FAERS Safety Report 6686877-8 (Version None)
Quarter: 2010Q2

REPORT INFORMATION
  Report Type: 
  Country: None (occurrence: None)
  Receive Date: 20100416
  Receipt Date: 20100416
  Transmission Date: 20101027
  Serious: No
  Sender: FDA-Public Use
  Company Number: None

PATIENT
  Sex: Female
  Weight: 65.7716 kg

DRUGS (2)
  1. VALACYCLOVIR [Suspect]
     Indication: ORAL HERPES
     Dosage: 1 TABLET 2 X DAILY
     Dates: start: 20100331, end: 20100401
  2. VALACYCLOVIR [Suspect]
     Indication: PROPHYLAXIS
     Dosage: 1 TABLET 2 X DAILY
     Dates: start: 20100331, end: 20100401

REACTIONS (1)
  - RASH PRURITIC [None]
